FAERS Safety Report 8063334-8 (Version None)
Quarter: 2012Q1

REPORT INFORMATION
  Report Type: 
  Country: None (occurrence: None)
  Receive Date: 20120123
  Receipt Date: 20120118
  Transmission Date: 20120608
  Serious: Yes (Hospitalization)
  Sender: FDA-Public Use
  Company Number: DE-ROCHE-651108

PATIENT
  Sex: Female
  Weight: 60 kg

DRUGS (9)
  1. ACETAMINOPHEN [Suspect]
     Indication: NASOPHARYNGITIS
     Dosage: RECEIVED SINGLE DOSE
     Route: 065
     Dates: start: 20081228, end: 20081228
  2. ACETAMINOPHEN [Suspect]
     Dates: start: 20090101, end: 20090110
  3. PANTOPRAZOLE [Concomitant]
     Dosage: TAKEN FOR SIX WEEKS AT ONSET OF EVENT.
  4. METHOTREXATE [Concomitant]
     Route: 048
     Dates: start: 20080801, end: 20080901
  5. URSO FALK [Concomitant]
     Dates: start: 20090206
  6. MABTHERA [Suspect]
     Indication: RHEUMATOID ARTHRITIS
     Dosage: ALSO ADMINISTERED ON 03 DEC 2007, 17 DEC 2007 AND IN NOV 2008.
     Route: 065
  7. NOVALGIN [Concomitant]
     Indication: RHEUMATOID ARTHRITIS
     Route: 048
  8. OMEPRAZOLE [Concomitant]
     Dates: start: 20060101
  9. METHOTREXATE [Concomitant]
     Indication: RHEUMATOID ARTHRITIS
     Route: 051
     Dates: start: 19980101, end: 20080801

REACTIONS (3)
  - NASOPHARYNGITIS [None]
  - CHOLESTASIS [None]
  - HEPATIC ENZYME INCREASED [None]
